FAERS Safety Report 5281132-5 (Version None)
Quarter: 2007Q1

REPORT INFORMATION
  Report Type: 
  Country: None (occurrence: None)
  Receive Date: 20070323
  Receipt Date: 20070312
  Transmission Date: 20070707
  Serious: Yes (Death)
  Sender: FDA-Public Use
  Company Number: 238117

PATIENT
  Age: 64 Year
  Sex: Female

DRUGS (6)
  1. MABTHERA  (RITUXIMAB) CONC FOR SOLUTION FOR INFUSION [Suspect]
     Indication: B-CELL LYMPHOMA
     Dosage: 573.8 MG, INTRAVENOUS
     Route: 042
     Dates: start: 20050330
  2. CYCLOPHOSPHAMIDE [Suspect]
     Indication: B-CELL LYMPHOMA
     Dosage: 1117.5 MG, INTRAVENOUS
     Route: 042
     Dates: start: 20050330
  3. ONCOVIN [Suspect]
     Indication: B-CELL LYMPHOMA
     Dosage: 20 MG, INTRAVENOUS
     Route: 042
     Dates: start: 20050330
  4. DOXORUBICIN HCL [Suspect]
     Indication: B-CELL LYMPHOMA
     Dosage: 74.5 MG, INTRAVENOUS
     Route: 042
     Dates: start: 20050330
  5. PREDNISONE TAB [Suspect]
     Indication: B-CELL LYMPHOMA
     Dosage: 80 MG,INTRAVENOUS
     Route: 042
     Dates: start: 20050330
  6. PREDNISONE TAB [Suspect]
     Indication: B-CELL LYMPHOMA
     Dosage: 64 MG, ORAL
     Route: 048
     Dates: start: 20051001

REACTIONS (1)
  - SEPTIC SHOCK [None]
